FAERS Safety Report 8458819-6 (Version None)
Quarter: 2012Q2

REPORT INFORMATION
  Report Type: 
  Country: None (occurrence: None)
  Receive Date: 20120618
  Receipt Date: 20120531
  Transmission Date: 20120825
  Serious: Yes (Other)
  Sender: FDA-Public Use
  Company Number: UCM201206-000054

PATIENT
  Age: 40 Year
  Sex: Male
  Weight: 69.4003 kg

DRUGS (17)
  1. HYDROCHLOROTHIAZIDE [Suspect]
     Indication: BLOOD PRESSURE INCREASED
  2. OXYCODONE HCL [Concomitant]
  3. CYMBALTA [Suspect]
     Indication: ANXIETY
     Dosage: 30 MG DAILY, 60 MG DAILY, 80 MG DAILY, 120 MG DAILY, 6-8 YEARS AGO
     Dates: start: 20120401
  4. CYMBALTA [Suspect]
     Indication: BLOOD PRESSURE INCREASED
     Dosage: 30 MG DAILY, 60 MG DAILY, 80 MG DAILY, 120 MG DAILY, 6-8 YEARS AGO
     Dates: start: 20120401
  5. CYMBALTA [Suspect]
     Indication: PAIN
     Dosage: 30 MG DAILY, 60 MG DAILY, 80 MG DAILY, 120 MG DAILY, 6-8 YEARS AGO
     Dates: start: 20120401
  6. CYMBALTA [Suspect]
     Indication: ANXIETY
     Dosage: 30 MG DAILY, 60 MG DAILY, 80 MG DAILY, 120 MG DAILY, 6-8 YEARS AGO
     Dates: end: 20120301
  7. CYMBALTA [Suspect]
     Indication: BLOOD PRESSURE INCREASED
     Dosage: 30 MG DAILY, 60 MG DAILY, 80 MG DAILY, 120 MG DAILY, 6-8 YEARS AGO
     Dates: end: 20120301
  8. CYMBALTA [Suspect]
     Indication: PAIN
     Dosage: 30 MG DAILY, 60 MG DAILY, 80 MG DAILY, 120 MG DAILY, 6-8 YEARS AGO
     Dates: end: 20120301
  9. LIPITOR [Concomitant]
  10. EXFORGE [Suspect]
     Indication: BLOOD PRESSURE INCREASED
  11. ALPRAZOLAM [Concomitant]
  12. CLONIDINE HCL [Suspect]
     Indication: BLOOD PRESSURE INCREASED
  13. TEKTURNA [Suspect]
     Indication: BLOOD PRESSURE INCREASED
  14. FLEXERIL [Concomitant]
  15. FLORICET (ACETAMINOPHEN, BUTALBITAL, AND CAFFEINE) [Concomitant]
  16. SOMA [Concomitant]
  17. EFFEXOR [Suspect]
     Indication: DEPRESSION
     Dosage: 75 MG DAILY
     Dates: start: 20120401

REACTIONS (13)
  - BLOOD PRESSURE INCREASED [None]
  - BLOOD CATECHOLAMINES DECREASED [None]
  - SYNCOPE [None]
  - BLOOD CORTICOTROPHIN ABNORMAL [None]
  - RESTLESSNESS [None]
  - DECREASED APPETITE [None]
  - MIGRAINE [None]
  - TEMPOROMANDIBULAR JOINT SYNDROME [None]
  - CONDITION AGGRAVATED [None]
  - MYDRIASIS [None]
  - URINE CALCIUM INCREASED [None]
  - NOREPINEPHRINE INCREASED [None]
  - BLOOD CORTISOL INCREASED [None]
